FAERS Safety Report 10284974 (Version 4)
Quarter: 2015Q3

REPORT INFORMATION
  Report Type: Report from Study
  Country: US (occurrence: US)
  Receive Date: 20140708
  Receipt Date: 20150821
  Transmission Date: 20151125
  Serious: Yes (Other)
  Sender: FDA-Public Use
  Company Number: US-SA-2014SA087830

PATIENT
  Sex: Female

DRUGS (1)
  1. AUBAGIO [Suspect]
     Active Substance: TERIFLUNOMIDE
     Indication: MULTIPLE SCLEROSIS
     Route: 048
     Dates: start: 20130325

REACTIONS (8)
  - Urinary tract infection [Unknown]
  - Back pain [Unknown]
  - Decreased appetite [Unknown]
  - Gait disturbance [Unknown]
  - Impaired gastric emptying [Unknown]
  - Orthosis user [Unknown]
  - Memory impairment [Unknown]
  - Arthralgia [Unknown]
